FAERS Safety Report 11611523 (Version 1)
Quarter: 2015Q4

REPORT INFORMATION
  Report Type: Spontaneous
  Country: US (occurrence: US)
  Receive Date: 20151008
  Receipt Date: 20151008
  Transmission Date: 20160304
  Serious: Yes (Other)
  Sender: FDA-Public Use
  Company Number: US-ABBVIE-15K-163-1474275-00

PATIENT
  Sex: Male

DRUGS (3)
  1. HUMIRA [Suspect]
     Active Substance: ADALIMUMAB
     Indication: PSORIASIS
     Dosage: UNKNOWN DOSAGE
     Route: 065
  2. ENBREL [Suspect]
     Active Substance: ETANERCEPT
     Indication: PSORIASIS
     Route: 065
  3. OTEZLA [Concomitant]
     Active Substance: APREMILAST
     Indication: PSORIASIS

REACTIONS (3)
  - Arthralgia [Not Recovered/Not Resolved]
  - Throat cancer [Unknown]
  - Alopecia [Unknown]
